FAERS Safety Report 6908215-5 (Version None)
Quarter: 2010Q3

REPORT INFORMATION
  Report Type: 
  Country: None (occurrence: None)
  Receive Date: 20100805
  Receipt Date: 20100729
  Transmission Date: 20110219
  Serious: Yes (Hospitalization, Disabling)
  Sender: FDA-Public Use
  Company Number: JP-BRISTOL-MYERS SQUIBB COMPANY-15201312

PATIENT
  Age: 65 Year
  Sex: Male

DRUGS (4)
  1. AVAPRO [Suspect]
     Indication: HYPERTENSION
     Route: 048
     Dates: start: 20100215, end: 20100629
  2. AMLODIPINE BESYLATE [Suspect]
     Dosage: DOSE INCREASED TO 10MG/D ON 16APR10
     Route: 048
     Dates: start: 20100101
  3. LIVALO [Suspect]
     Route: 048
     Dates: start: 20100305
  4. ARTIST [Suspect]
     Route: 048
     Dates: start: 20100518

REACTIONS (2)
  - ARRHYTHMIA [None]
  - CEREBRAL INFARCTION [None]
